FAERS Safety Report 8276633-1 (Version None)
Quarter: 2012Q2

REPORT INFORMATION
  Report Type: 
  Country: None (occurrence: None)
  Receive Date: 20120412
  Receipt Date: 20120409
  Transmission Date: 20120825
  Serious: Yes (Life-Threatening, Other)
  Sender: FDA-Public Use
  Company Number: PHEH2012US007440

PATIENT
  Sex: Female

DRUGS (19)
  1. ASPIRIN [Concomitant]
  2. XOPENEX [Concomitant]
  3. PREMARIN [Concomitant]
  4. ATROVENT [Concomitant]
  5. TOPROL-XL [Concomitant]
  6. COLON [Concomitant]
  7. SYSTANE (PROPYLENE GLYCOL/MACROGOL) [Concomitant]
  8. RECLAST [Suspect]
     Indication: OSTEOPOROSIS
     Dosage: UNK UKN, YEARLY
     Route: 042
  9. POTASSIUM [Concomitant]
  10. AZITHROMYCIN [Concomitant]
  11. IBUPROFEN [Concomitant]
  12. AZATUMINGIN [Concomitant]
  13. SULFADIAZINE [Concomitant]
  14. XANAX [Concomitant]
  15. CARDIZEN [Concomitant]
  16. CALCIUM CARBONATE [Concomitant]
  17. DIGOXIN [Concomitant]
  18. LOMOTIL [Concomitant]
  19. LEVAQUIN [Concomitant]

REACTIONS (7)
  - BLINDNESS UNILATERAL [None]
  - PAIN [None]
  - URTICARIA [None]
  - PYREXIA [None]
  - SUICIDAL BEHAVIOUR [None]
  - BONE PAIN [None]
  - MALAISE [None]
